FAERS Safety Report 19256591 (Version 1)
Quarter: 2021Q2

REPORT INFORMATION
  Report Type: Spontaneous
  Country: US (occurrence: US)
  Receive Date: 20210513
  Receipt Date: 20210513
  Transmission Date: 20210717
  Serious: No
  Sender: FDA-Public Use
  Company Number: US-TAKEDA-2021TUS029044

PATIENT
  Age: 30 Year
  Sex: Male

DRUGS (1)
  1. VYVANSE [Suspect]
     Active Substance: LISDEXAMFETAMINE DIMESYLATE
     Indication: ATTENTION DEFICIT HYPERACTIVITY DISORDER
     Route: 065

REACTIONS (5)
  - Drug ineffective [Unknown]
  - Product solubility abnormal [Unknown]
  - Therapy interrupted [Unknown]
  - Wrong technique in product usage process [Unknown]
  - Product physical issue [Unknown]
